FAERS Safety Report 16461067 (Version 1)
Quarter: 2019Q2

REPORT INFORMATION
  Report Type: Spontaneous
  Country: US (occurrence: US)
  Receive Date: 20190620
  Receipt Date: 20190620
  Transmission Date: 20190711
  Serious: Yes (Other)
  Sender: FDA-Public Use
  Company Number: US-SHIRE-US201919366

PATIENT
  Age: 66 Year
  Sex: Female
  Weight: 80.73 kg

DRUGS (1)
  1. XIIDRA [Suspect]
     Active Substance: LIFITEGRAST
     Indication: DRY EYE
     Dosage: 1 GTT DROPS, 1X/DAY:QD
     Route: 047

REACTIONS (6)
  - Off label use [Not Recovered/Not Resolved]
  - Myocardial infarction [Recovered/Resolved]
  - Expired product administered [Not Recovered/Not Resolved]
  - Inappropriate schedule of product administration [Not Recovered/Not Resolved]
  - Product dispensing issue [Not Recovered/Not Resolved]
  - Vision blurred [Not Recovered/Not Resolved]

NARRATIVE: CASE EVENT DATE: 20190419
